FAERS Safety Report 6200362-9 (Version None)
Quarter: 2009Q2

REPORT INFORMATION
  Report Type: 
  Country: None (occurrence: None)
  Receive Date: 20090522
  Receipt Date: 20071218
  Transmission Date: 20091009
  Serious: No
  Sender: FDA-Public Use
  Company Number: US-ALEXION-A200700123

PATIENT
  Sex: Male
  Weight: 108.84 kg

DRUGS (5)
  1. SOLIRIS [Suspect]
     Indication: PAROXYSMAL NOCTURNAL HAEMOGLOBINURIA
     Dosage: 600 MG, SINGLE
     Route: 042
     Dates: start: 20071214, end: 20071214
  2. MULTIVITAMIN /00831701/ [Concomitant]
     Indication: VITAMIN SUPPLEMENTATION
     Dosage: UNK, QD
     Route: 048
  3. BLOOD CELLS, PACKED HUMAN [Concomitant]
     Indication: LABORATORY TEST ABNORMAL
     Dosage: 2 UNITS, SINGLE
     Route: 042
     Dates: start: 20071214, end: 20071214
  4. TYLENOL (CAPLET) [Concomitant]
     Indication: PREMEDICATION
     Dosage: UNK, SINGLE
     Route: 048
     Dates: start: 20071214, end: 20071214
  5. BENADRYL [Concomitant]
     Indication: PREMEDICATION
     Dosage: UNK, SINGLE
     Route: 048
     Dates: start: 20071214, end: 20071214

REACTIONS (1)
  - HEADACHE [None]
